FAERS Safety Report 17128934 (Version 1)
Quarter: 2019Q4

REPORT INFORMATION
  Report Type: Spontaneous
  Country: US (occurrence: US)
  Receive Date: 20191207
  Receipt Date: 20191207
  Transmission Date: 20200122
  Serious: Yes (Other)
  Sender: FDA-Public Use
  Company Number: None

PATIENT
  Age: 74 Year
  Sex: Female
  Weight: 53.1 kg

DRUGS (14)
  1. PS100 [Concomitant]
  2. C-ESTRIOL [Concomitant]
  3. PROGESTERONE. [Concomitant]
     Active Substance: PROGESTERONE
  4. VITAMIN B [Concomitant]
     Active Substance: VITAMIN B
  5. VITAMIN C [Concomitant]
     Active Substance: ASCORBIC ACID
  6. CALCIUM [Concomitant]
     Active Substance: CALCIUM
  7. LISINOPRIL. [Concomitant]
     Active Substance: LISINOPRIL
  8. MAGNESIUM [Concomitant]
     Active Substance: MAGNESIUM
  9. BIOTIN [Concomitant]
     Active Substance: BIOTIN
  10. DHA [Concomitant]
     Active Substance: DIETARY SUPPLEMENT
  11. VERSED [Suspect]
     Active Substance: MIDAZOLAM HYDROCHLORIDE
     Indication: ANAESTHESIA
     Dates: start: 20190520, end: 20190624
  12. FLUTICASONE. [Concomitant]
     Active Substance: FLUTICASONE
  13. NATURE-THROID [Concomitant]
     Active Substance: THYROID, PORCINE
  14. VITAMIN E [Concomitant]
     Active Substance: .ALPHA.-TOCOPHEROL

REACTIONS (1)
  - Migraine [None]

NARRATIVE: CASE EVENT DATE: 20190520
